FAERS Safety Report 5496547-X (Version None)
Quarter: 2007Q4

REPORT INFORMATION
  Report Type: 
  Country: None (occurrence: None)
  Receive Date: 20071025
  Receipt Date: 20070731
  Transmission Date: 20080405
  Serious: No
  Sender: FDA-Public Use
  Company Number: A0656604A

PATIENT
  Age: 73 Year
  Sex: Male

DRUGS (7)
  1. ADVAIR DISKUS 100/50 [Suspect]
     Indication: ASTHMA
     Dosage: 500MCG TWICE PER DAY
     Route: 055
  2. ALLOPURINOL [Concomitant]
  3. CLARITIN [Concomitant]
  4. ALBUTEROL [Concomitant]
  5. TERAZOSIN HCL [Concomitant]
  6. VESICARE [Concomitant]
  7. OMEPRAZOLE [Concomitant]

REACTIONS (5)
  - APHONIA [None]
  - CONDITION AGGRAVATED [None]
  - COUGH [None]
  - DRUG INEFFECTIVE [None]
  - PHARMACEUTICAL PRODUCT COMPLAINT [None]
